FAERS Safety Report 6266193-9 (Version None)
Quarter: 2009Q3

REPORT INFORMATION
  Report Type: 
  Country: None (occurrence: None)
  Receive Date: 20090713
  Receipt Date: 20090611
  Transmission Date: 20100115
  Serious: No
  Sender: FDA-Public Use
  Company Number: US-BAYER-200911822BCC

PATIENT
  Age: 61 Year
  Sex: Female
  Weight: 64 kg

DRUGS (1)
  1. ALEVE [Suspect]
     Indication: BACK PAIN
     Dosage: TOOK 2 TABLETS ON 07, 09 AND 10-JUN-2009; 3 TABLETS ON 08-JUN-2009 AND 1 TABLET ON 11-JUN-2009
     Route: 048
     Dates: start: 20090607

REACTIONS (1)
  - ADVERSE EVENT [None]
